FAERS Safety Report 22647416 (Version 1)
Quarter: 2023Q2

REPORT INFORMATION
  Report Type: Report from Study
  Country: US (occurrence: US)
  Receive Date: 20230628
  Receipt Date: 20230628
  Transmission Date: 20230722
  Serious: Yes (Other)
  Sender: FDA-Public Use
  Company Number: US-ABBVIE-5305913

PATIENT
  Sex: Female

DRUGS (1)
  1. IMBRUVICA [Suspect]
     Active Substance: IBRUTINIB
     Indication: Lymphocytic leukaemia
     Route: 048

REACTIONS (5)
  - Surgery [Not Recovered/Not Resolved]
  - Muscle spasms [Unknown]
  - Sinusitis [Not Recovered/Not Resolved]
  - Hypertension [Recovering/Resolving]
  - Unevaluable event [Not Recovered/Not Resolved]
